FAERS Safety Report 8163754-7 (Version None)
Quarter: 2012Q1

REPORT INFORMATION
  Report Type: 
  Country: None (occurrence: None)
  Receive Date: 20120224
  Receipt Date: 20120216
  Transmission Date: 20120608
  Serious: Yes (Hospitalization, Other)
  Sender: FDA-Public Use
  Company Number: PHHY2012AU014088

PATIENT
  Age: 36 Year
  Sex: Female

DRUGS (7)
  1. CLOZAPINE [Suspect]
     Indication: SCHIZOPHRENIA
     Dosage: 12.5 MG, DAILY
  2. CLOZAPINE [Suspect]
     Dosage: 150 MG MANE AND 300 MG NOCTE
  3. LITHIUM CARBONATE [Concomitant]
  4. QUETIAPINE [Concomitant]
  5. ACETAMINOPHEN [Concomitant]
  6. VALPROATE SODIUM [Concomitant]
  7. SALICYLATES [Concomitant]

REACTIONS (22)
  - TOXICITY TO VARIOUS AGENTS [None]
  - RENAL FAILURE ACUTE [None]
  - PULMONARY OEDEMA [None]
  - RENAL IMPAIRMENT [None]
  - EFFUSION [None]
  - INTESTINAL DILATATION [None]
  - SYSTEMIC INFLAMMATORY RESPONSE SYNDROME [None]
  - PROCALCITONIN INCREASED [None]
  - BLOOD CREATININE INCREASED [None]
  - HEPATOMEGALY [None]
  - PYREXIA [None]
  - C-REACTIVE PROTEIN INCREASED [None]
  - LEFT VENTRICULAR DYSFUNCTION [None]
  - ILEUS [None]
  - URINARY TRACT INFECTION [None]
  - MALAISE [None]
  - METABOLIC ACIDOSIS [None]
  - FLUID OVERLOAD [None]
  - HYPOTENSION [None]
  - ABDOMINAL PAIN [None]
  - PROTEINURIA [None]
  - HEADACHE [None]
